FAERS Safety Report 8185070-X (Version None)
Quarter: 2012Q1

REPORT INFORMATION
  Report Type: 
  Country: None (occurrence: None)
  Receive Date: 20120305
  Receipt Date: 20120229
  Transmission Date: 20120608
  Serious: Yes (Hospitalization, Other)
  Sender: FDA-Public Use
  Company Number: FR-PFIZER INC-2012053197

PATIENT
  Age: 80 Year
  Sex: Male

DRUGS (7)
  1. LASIX [Suspect]
     Indication: PRODUCT USED FOR UNKNOWN INDICATION
     Dosage: 20MG, DAILY
     Route: 048
  2. NEXIUM [Concomitant]
     Dosage: UNK
  3. ATORVASTATIN [Suspect]
     Indication: ATHEROSCLEROSIS PROPHYLAXIS
     Dosage: 10MG, DAILY
     Route: 048
  4. ISOPTIN [Concomitant]
     Dosage: UNK
  5. GLUCOPHAGE [Suspect]
     Indication: TYPE 2 DIABETES MELLITUS
     Dosage: 500 MG, 2X/DAY
     Route: 048
     Dates: end: 20120207
  6. GLYBURIDE [Suspect]
     Indication: TYPE 2 DIABETES MELLITUS
     Dosage: UNK
     Route: 048
     Dates: end: 20120207
  7. ASPIRIN [Concomitant]
     Dosage: UNK

REACTIONS (2)
  - PANCREATITIS [None]
  - RENAL FAILURE ACUTE [None]
